FAERS Safety Report 9406172 (Version 2)
Quarter: 2013Q3

REPORT INFORMATION
  Report Type: Report from Study
  Country: US (occurrence: US)
  Receive Date: 20130717
  Receipt Date: 20130725
  Transmission Date: 20140515
  Serious: Yes (Hospitalization)
  Sender: FDA-Public Use
  Company Number: US-VERTEX PHARMACEUTICALS INC-2013-008032

PATIENT
  Age: 9 Year
  Sex: Female
  Weight: 437 kg

DRUGS (22)
  1. VX-770 [Suspect]
     Indication: CYSTIC FIBROSIS
     Dosage: 150 MG, BID
     Route: 048
     Dates: start: 20120210
  2. PULMOZYME [Concomitant]
  3. ALBUTEROL [Concomitant]
     Indication: DYSPNOEA
     Dosage: 2PUFF, PRN Q4 HOURS
     Route: 055
  4. ALBUTEROL [Concomitant]
     Indication: WHEEZING
  5. FLOVENT [Concomitant]
     Indication: COUGH
     Dosage: 2 PUFF, BID PRN
     Route: 055
  6. FLOVENT [Concomitant]
     Indication: PULMONARY CONGESTION
  7. ACAPELLA [Concomitant]
     Dosage: UNK, BID
  8. ZYRTEC [Concomitant]
     Dosage: 10 MG, QD
     Route: 048
  9. ZOFRAN [Concomitant]
     Dosage: UNK, PRN
  10. PREVACID [Concomitant]
  11. ERYTHROMYCIN [Concomitant]
     Dosage: 100 MG, TID
     Route: 048
  12. LACTOBACILLUS [Concomitant]
     Dosage: 1 DF, QD
     Route: 048
  13. MIRALAX [Concomitant]
     Dosage: 17 G, BID
  14. LANTUS [Concomitant]
     Dosage: 4 UNK, UNK
  15. HUMALOG [Concomitant]
     Dosage: 1U:25 CHO, 0.5U FOR EVERY 50}160
  16. CHOLECALCIFEROL [Concomitant]
     Dosage: 1000 DF, BID
     Route: 048
  17. POLYETHYLENE GLYCOL 3350 [Concomitant]
     Dosage: 8.5 G, BID
     Route: 048
  18. LACTASE [Concomitant]
     Dosage: 1 DF, TID
     Route: 048
  19. LANSOPRAZOLE [Concomitant]
     Dosage: 30 MG, BID
     Route: 048
  20. PANCRELIPASE [Concomitant]
     Dosage: 3 DF, TID PRN
     Route: 048
  21. ONDANSETRAN [Concomitant]
     Indication: NAUSEA
     Dosage: 6.4 MG, Q6 HOURS, PRN
     Route: 041
  22. ONDANSETRAN [Concomitant]
     Indication: VOMITING

REACTIONS (4)
  - Intestinal obstruction [Recovered/Resolved]
  - Sinusitis [Recovered/Resolved]
  - Dehydration [Unknown]
  - Scar [Unknown]
